FAERS Safety Report 7290090-3 (Version None)
Quarter: 2011Q1

REPORT INFORMATION
  Report Type: 
  Country: None (occurrence: None)
  Receive Date: 20110214
  Receipt Date: 20110204
  Transmission Date: 20110831
  Serious: Yes (Hospitalization, Other)
  Sender: FDA-Public Use
  Company Number: IN-BRISTOL-MYERS SQUIBB COMPANY-14734784

PATIENT
  Age: 35 Year
  Sex: Female

DRUGS (5)
  1. MYCOPHENOLATE MOFETIL [Suspect]
     Indication: SYSTEMIC LUPUS ERYTHEMATOSUS
     Dosage: 2 G(14JUL09-07AUG09) 1 G(08AUG09-CONT)
     Dates: start: 20090714
  2. PREDNISOLONE [Suspect]
     Indication: SYSTEMIC LUPUS ERYTHEMATOSUS
     Dates: start: 20090714
  3. ABATACEPT [Suspect]
     Indication: SYSTEMIC LUPUS ERYTHEMATOSUS
     Route: 042
     Dates: start: 20090714, end: 20090731
  4. ALENDRONIC ACID [Concomitant]
     Dates: start: 20080321
  5. SHELCAL [Concomitant]
     Route: 048
     Dates: start: 20080625

REACTIONS (4)
  - STAPHYLOCOCCAL ABSCESS [None]
  - SUBCUTANEOUS ABSCESS [None]
  - GASTROENTERITIS SHIGELLA [None]
  - DIARRHOEA [None]
